FAERS Safety Report 10889818 (Version 1)
Quarter: 2015Q1

REPORT INFORMATION
  Report Type: Report from Study
  Country: US (occurrence: US)
  Receive Date: 20150305
  Receipt Date: 20150305
  Transmission Date: 20150721
  Serious: Yes (Hospitalization, Other)
  Sender: FDA-Public Use
  Company Number: US-ASTELLAS-2015US004404

PATIENT
  Age: 66 Year
  Sex: Female

DRUGS (2)
  1. ERLOTINIB [Suspect]
     Active Substance: ERLOTINIB
     Indication: NON-SMALL CELL LUNG CANCER
     Route: 048
     Dates: start: 20140327
  2. ERLOTINIB [Suspect]
     Active Substance: ERLOTINIB
     Indication: NON-HODGKIN^S LYMPHOMA

REACTIONS (7)
  - Fall [Recovering/Resolving]
  - Hip fracture [Recovering/Resolving]
  - Dry skin [Recovered/Resolved]
  - Acne [Recovered/Resolved]
  - Deep vein thrombosis [Recovered/Resolved]
  - Skin fissures [Recovered/Resolved]
  - Eczema [Recovered/Resolved]

NARRATIVE: CASE EVENT DATE: 2014
